APPROVED DRUG PRODUCT: RANITIDINE HYDROCHLORIDE
Active Ingredient: RANITIDINE HYDROCHLORIDE
Strength: EQ 75MG BASE
Dosage Form/Route: TABLET;ORAL
Application: A075497 | Product #001
Applicant: PHARMOBEDIENT CONSULTING LLC
Approved: Jan 14, 2000 | RLD: No | RS: No | Type: DISCN